FAERS Safety Report 10788302 (Version 1)
Quarter: 2015Q1

REPORT INFORMATION
  Report Type: Spontaneous
  Country: US (occurrence: US)
  Receive Date: 20150212
  Receipt Date: 20150212
  Transmission Date: 20150721
  Serious: Yes (Death)
  Sender: FDA-Public Use
  Company Number: US-CIPLA LTD.-2015US01068

PATIENT

DRUGS (3)
  1. ENALAPRIL [Suspect]
     Active Substance: ENALAPRIL
  2. RISPERIDONE. [Suspect]
     Active Substance: RISPERIDONE
  3. DOXEPIN [Suspect]
     Active Substance: DOXEPIN

REACTIONS (1)
  - Completed suicide [Fatal]
